FAERS Safety Report 5474423-6 (Version None)
Quarter: 2007Q4

REPORT INFORMATION
  Report Type: 
  Country: None (occurrence: None)
  Receive Date: 20071002
  Receipt Date: 20070921
  Transmission Date: 20080405
  Serious: Yes (Hospitalization)
  Sender: FDA-Public Use
  Company Number: FR-JNJFOC-20070902726

PATIENT
  Age: 76 Year
  Sex: Male

DRUGS (5)
  1. REMICADE [Suspect]
     Indication: CROHN'S DISEASE
     Dosage: TOTAL OF 29 INFUSIONS
     Route: 042
  2. AZATHIOPRINE SODIUM [Suspect]
     Indication: CROHN'S DISEASE
  3. TAREG [Concomitant]
  4. FOSAMAX [Concomitant]
  5. OROCAL D3 [Concomitant]

REACTIONS (1)
  - HODGKIN'S DISEASE [None]
